FAERS Safety Report 19932457 (Version 1)
Quarter: 2021Q4

REPORT INFORMATION
  Report Type: Spontaneous
  Country: CA (occurrence: CA)
  Receive Date: 20211008
  Receipt Date: 20211008
  Transmission Date: 20220303
  Serious: Yes (Disabling, Other)
  Sender: FDA-Public Use
  Company Number: CA-TEVA-2021-CA-1961601

PATIENT
  Age: 43 Year
  Sex: Male
  Weight: 100 kg

DRUGS (2)
  1. BUPRENORPHINE\NALOXONE [Suspect]
     Active Substance: BUPRENORPHINE\NALOXONE
     Dosage: 16 MILLIGRAM DAILY;
     Route: 060
  2. BUPRENORPHINE\NALOXONE [Suspect]
     Active Substance: BUPRENORPHINE\NALOXONE
     Dosage: 8 MILLIGRAM DAILY;
     Route: 060

REACTIONS (2)
  - Gastrointestinal disorder [Recovered/Resolved]
  - Product substitution issue [Recovered/Resolved]
